FAERS Safety Report 16981272 (Version 1)
Quarter: 2019Q4

REPORT INFORMATION
  Report Type: Spontaneous
  Country: FR (occurrence: FR)
  Receive Date: 20191031
  Receipt Date: 20191031
  Transmission Date: 20200122
  Serious: Yes (Hospitalization, Other)
  Sender: FDA-Public Use
  Company Number: FR-AUROBINDO-AUR-APL-2019-069642

PATIENT
  Age: 94 Year
  Sex: Male
  Weight: 77.5 kg

DRUGS (3)
  1. KARDEGIC [Suspect]
     Active Substance: ASPIRIN DL-LYSINE
     Indication: CARDIOVASCULAR EVENT PROPHYLAXIS
     Dosage: 160 MILLIGRAM, ONCE A DAY
     Route: 048
     Dates: end: 20190829
  2. LOVENOX [Suspect]
     Active Substance: ENOXAPARIN SODIUM
     Indication: CARDIOVASCULAR EVENT PROPHYLAXIS
     Dosage: 4000 INTERNATIONAL UNIT, ONCE A DAY
     Route: 058
  3. PAROXETINE. [Suspect]
     Active Substance: PAROXETINE
     Indication: DEPRESSION
     Dosage: 20 MILLIGRAM, ONCE A DAY
     Route: 048

REACTIONS (1)
  - Intracranial haematoma [Recovered/Resolved]

NARRATIVE: CASE EVENT DATE: 20190826
